FAERS Safety Report 19002263 (Version 1)
Quarter: 2021Q1

REPORT INFORMATION
  Report Type: Spontaneous
  Country: US (occurrence: US)
  Receive Date: 20210312
  Receipt Date: 20210312
  Transmission Date: 20210420
  Serious: Yes (Life-Threatening, Hospitalization)
  Sender: FDA-Public Use
  Company Number: US-MYLANLABS-2021M1014230

PATIENT
  Age: 29 Year
  Sex: Female

DRUGS (3)
  1. LOPERAMIDE [Suspect]
     Active Substance: LOPERAMIDE
     Indication: ABDOMINAL DISCOMFORT
     Dosage: 300 TABLETS DAILY (ONE TABLET...
     Route: 065
  2. SODIUM BICARBONATE. [Suspect]
     Active Substance: SODIUM BICARBONATE
     Indication: VENTRICULAR TACHYCARDIA
     Dosage: 150 MILLIEQUIVALENT, QH, INFUSION
  3. MAGNESIUM SULFATE. [Suspect]
     Active Substance: MAGNESIUM SULFATE
     Indication: VENTRICULAR TACHYCARDIA
     Dosage: UNK
     Route: 042

REACTIONS (8)
  - Drug abuse [Recovering/Resolving]
  - Drug ineffective [Unknown]
  - Confusional state [Recovering/Resolving]
  - Overdose [Recovering/Resolving]
  - Mood altered [Recovering/Resolving]
  - Torsade de pointes [Recovering/Resolving]
  - Condition aggravated [Recovering/Resolving]
  - Ventricular tachycardia [Recovered/Resolved]
